FAERS Safety Report 6436685-8 (Version None)
Quarter: 2009Q4

REPORT INFORMATION
  Report Type: 
  Country: None (occurrence: None)
  Receive Date: 20091111
  Receipt Date: 20091029
  Transmission Date: 20100525
  Serious: No
  Sender: FDA-Public Use
  Company Number: US-B.I. PHARMACEUTICALS,INC./RIDGEFIELD-2009-BP-12727BP

PATIENT
  Sex: Female

DRUGS (2)
  1. COMBIVENT [Suspect]
     Indication: ASTHMA
     Route: 055
     Dates: start: 19970101
  2. ACIPHEX [Concomitant]
     Indication: GASTROOESOPHAGEAL REFLUX DISEASE

REACTIONS (3)
  - GASTROOESOPHAGEAL REFLUX DISEASE [None]
  - INCORRECT DOSE ADMINISTERED [None]
  - URINE AMPHETAMINE POSITIVE [None]
